FAERS Safety Report 8610486-4 (Version None)
Quarter: 2012Q3

REPORT INFORMATION
  Report Type: 
  Country: None (occurrence: None)
  Receive Date: 20120822
  Receipt Date: 20120820
  Transmission Date: 20120928
  Serious: No
  Sender: FDA-Public Use
  Company Number: US-PFIZER INC-2012194591

PATIENT
  Age: 63 Year
  Sex: Female
  Weight: 71.655 kg

DRUGS (3)
  1. GABAPENTIN [Concomitant]
     Indication: PAIN
     Dosage: 200 MG, EVERY 4 HRS
  2. CELEBREX [Suspect]
     Indication: BACK PAIN
     Dosage: 200 MG, 2X/DAY
     Dates: start: 20120801, end: 20120801
  3. ATENOLOL [Concomitant]
     Indication: HYPERTENSION
     Dosage: 50 MG, DAILY

REACTIONS (3)
  - INSOMNIA [None]
  - INTERVERTEBRAL DISC DEGENERATION [None]
  - TREMOR [None]
